FAERS Safety Report 15586670 (Version 1)
Quarter: 2018Q4

REPORT INFORMATION
  Report Type: Spontaneous
  Country: US (occurrence: US)
  Receive Date: 20181101
  Receipt Date: 20181101
  Transmission Date: 20190205
  Serious: Yes (Other)
  Sender: FDA-Public Use
  Company Number: None

PATIENT
  Age: 60 Year
  Sex: Female
  Weight: 63.5 kg

DRUGS (3)
  1. ZOCOR [Concomitant]
     Active Substance: SIMVASTATIN
  2. BUPROPION HCL XL 150MG [Suspect]
     Active Substance: BUPROPION HYDROCHLORIDE
     Indication: DEPRESSION
     Route: 048
     Dates: start: 20181005, end: 20181012
  3. ACYCLOVIR. [Concomitant]
     Active Substance: ACYCLOVIR

REACTIONS (2)
  - Depression [None]
  - Product substitution issue [None]
